FAERS Safety Report 5287578-3 (Version None)
Quarter: 2007Q1

REPORT INFORMATION
  Report Type: 
  Country: None (occurrence: None)
  Receive Date: 20070126
  Receipt Date: 20060822
  Transmission Date: 20070707
  Serious: No
  Sender: FDA-Public Use
  Company Number: 2006CT001144

PATIENT
  Age: 67 Year
  Sex: Female
  Weight: 74.3899 kg

DRUGS (8)
  1. VENTAVIS [Suspect]
     Indication: PULMONARY HYPERTENSION
     Dosage: 5 UG;6XD;INH
     Route: 055
     Dates: start: 20060726, end: 20060825
  2. K-DUR 10 [Concomitant]
  3. DIGOXIN [Concomitant]
  4. SILDENAFIL CITRATE [Concomitant]
  5. PREDNISONE TAB [Concomitant]
  6. LASIX [Concomitant]
  7. IMURAN [Concomitant]
  8. OXYGEN [Concomitant]

REACTIONS (2)
  - COUGH [None]
  - EYE HAEMORRHAGE [None]
